FAERS Safety Report 12114395 (Version 1)
Quarter: 2016Q1

REPORT INFORMATION
  Report Type: Spontaneous
  Country: US (occurrence: None)
  Receive Date: 20160224
  Receipt Date: 20160224
  Transmission Date: 20160526
  Serious: No
  Sender: FDA-Public Use
  Company Number: None

PATIENT
  Sex: Female

DRUGS (14)
  1. DIOVAN [Concomitant]
     Active Substance: VALSARTAN
  2. CALCIUM [Concomitant]
     Active Substance: CALCIUM
  3. LEVOTHYROXINE. [Concomitant]
     Active Substance: LEVOTHYROXINE
  4. VALSARTAN. [Concomitant]
     Active Substance: VALSARTAN
  5. CHOLOCALIFEROL [Concomitant]
  6. HYDROCO/APAP [Concomitant]
     Active Substance: ACETAMINOPHEN\HYDROCODONE
  7. NYSTOP [Concomitant]
     Active Substance: NYSTATIN
  8. IBRANCE [Suspect]
     Active Substance: PALBOCICLIB
     Indication: BREAST CANCER
     Route: 048
     Dates: start: 20151224
  9. LETRAZOLE (FEMARA) 2.5 MG GENERIC FEMARA [Concomitant]
     Active Substance: LETROZOLE
  10. FLUCONAZOLE. [Concomitant]
     Active Substance: FLUCONAZOLE
  11. ALBUTEROL. [Concomitant]
     Active Substance: ALBUTEROL
  12. OXYCODONE [Concomitant]
     Active Substance: OXYCODONE
  13. POLYETHELENA GLYC [Concomitant]
  14. SPIRIVA [Concomitant]
     Active Substance: TIOTROPIUM BROMIDE MONOHYDRATE

REACTIONS (3)
  - Gastric disorder [None]
  - Diarrhoea [None]
  - Constipation [None]

NARRATIVE: CASE EVENT DATE: 2016
